FAERS Safety Report 22606290 (Version 1)
Quarter: 2023Q2

REPORT INFORMATION
  Report Type: Spontaneous
  Country: US (occurrence: None)
  Receive Date: 20230614
  Receipt Date: 20230614
  Transmission Date: 20230721
  Serious: No
  Sender: FDA-Public Use
  Company Number: None

PATIENT
  Sex: Male

DRUGS (14)
  1. SORAFENIB TOSYLATE [Suspect]
     Active Substance: SORAFENIB TOSYLATE
     Indication: Hepatocellular carcinoma
     Dosage: OTHER QUANTITY : 2T;?FREQUENCY : TWICE A DAY;?
     Route: 048
  2. HYDROXYZINE [Concomitant]
     Active Substance: HYDROXYZINE HYDROCHLORIDE
  3. MEGESTROL [Concomitant]
     Active Substance: MEGESTROL
  4. OXYBUTYNIN [Concomitant]
     Active Substance: OXYBUTYNIN
  5. FLOMAX [Concomitant]
     Active Substance: TAMSULOSIN HYDROCHLORIDE
  6. DIPHENHYDRAMINE [Concomitant]
     Active Substance: DIPHENHYDRAMINE
  7. VITAMIN B12 [Concomitant]
     Active Substance: CYANOCOBALAMIN
  8. VITAMIN D3 [Concomitant]
     Active Substance: CHOLECALCIFEROL
  9. LOSARTAN [Concomitant]
     Active Substance: LOSARTAN
  10. ASPIRIN [Concomitant]
     Active Substance: ASPIRIN
  11. PRAVASTATIN [Concomitant]
     Active Substance: PRAVASTATIN
  12. AMLODIPINE [Concomitant]
     Active Substance: AMLODIPINE BESYLATE
  13. FERROUS SULFATE [Concomitant]
     Active Substance: FERROUS SULFATE
  14. OMEPRAZOLE [Concomitant]
     Active Substance: OMEPRAZOLE

REACTIONS (1)
  - Hospice care [None]
